FAERS Safety Report 7406611-3 (Version None)
Quarter: 2011Q2

REPORT INFORMATION
  Report Type: 
  Country: None (occurrence: None)
  Receive Date: 20110411
  Receipt Date: 20110405
  Transmission Date: 20111010
  Serious: Yes (Life-Threatening, Hospitalization, Other)
  Sender: FDA-Public Use
  Company Number: US-ASTRAZENECA-2011SE10335

PATIENT
  Age: 60 Year
  Sex: Female

DRUGS (1)
  1. ATACAND [Suspect]
     Route: 048

REACTIONS (9)
  - PAROTID GLAND INFLAMMATION [None]
  - HYPERTENSION [None]
  - RASH PUSTULAR [None]
  - SWOLLEN TONGUE [None]
  - LOCAL SWELLING [None]
  - FALL [None]
  - HAEMATOMA [None]
  - RASH PRURITIC [None]
  - SUBARACHNOID HAEMORRHAGE [None]
